FAERS Safety Report 7520309-2 (Version None)
Quarter: 2011Q2

REPORT INFORMATION
  Report Type: 
  Country: None (occurrence: None)
  Receive Date: 20110602
  Receipt Date: 20110527
  Transmission Date: 20111010
  Serious: Yes (Life-Threatening, Other)
  Sender: FDA-Public Use
  Company Number: IT-BAYER-2011-043247

PATIENT
  Age: 78 Year
  Sex: Female

DRUGS (4)
  1. ALAPRIL [LISINOPRIL] [Concomitant]
     Dosage: UNK
     Route: 048
  2. CHEMOTHERAPEUTICS NOS [Concomitant]
  3. ULTRAVIST 150 [Suspect]
     Indication: COMPUTERISED TOMOGRAM ABDOMEN
     Dosage: UNK UNK, ONCE
     Route: 042
     Dates: start: 20110505, end: 20110505
  4. PRAVASTATIN [Concomitant]

REACTIONS (4)
  - VOMITING [None]
  - HYPERAEMIA [None]
  - DYSPNOEA [None]
  - HYPERSENSITIVITY [None]
